FAERS Safety Report 26174219 (Version 1)
Quarter: 2025Q4

REPORT INFORMATION
  Report Type: Spontaneous
  Country: US (occurrence: US)
  Receive Date: 20251218
  Receipt Date: 20251218
  Transmission Date: 20260119
  Serious: Yes (Hospitalization)
  Sender: STRIDES
  Company Number: US-STRIDES ARCOLAB LIMITED-2025SP015702

PATIENT
  Age: 63 Year
  Sex: Female

DRUGS (7)
  1. OSELTAMIVIR [Suspect]
     Active Substance: OSELTAMIVIR
     Indication: Influenza
     Dosage: UNK
     Route: 065
  2. HEPARIN [Concomitant]
     Active Substance: HEPARIN SODIUM
     Indication: Splenic infarction
     Dosage: UNK, DRIP
     Route: 065
  3. ELIQUIS [Concomitant]
     Active Substance: APIXABAN
     Indication: Splenic infarction
     Dosage: UNK
     Route: 065
  4. EVEROLIMUS [Concomitant]
     Active Substance: EVEROLIMUS
     Indication: Metastatic neoplasm
     Dosage: UNK
     Route: 065
  5. EVEROLIMUS [Concomitant]
     Active Substance: EVEROLIMUS
     Indication: Bronchial neoplasm
  6. LANREOTIDE [Concomitant]
     Active Substance: LANREOTIDE
     Indication: Metastatic neoplasm
     Dosage: UNK
     Route: 065
  7. LANREOTIDE [Concomitant]
     Active Substance: LANREOTIDE
     Indication: Bronchial neoplasm

REACTIONS (1)
  - Condition aggravated [Unknown]
